FAERS Safety Report 18054345 (Version 1)
Quarter: 2020Q3

REPORT INFORMATION
  Report Type: Spontaneous
  Country: US (occurrence: US)
  Receive Date: 20200722
  Receipt Date: 20200722
  Transmission Date: 20201103
  Serious: Yes (Other)
  Sender: FDA-Public Use
  Company Number: None

PATIENT
  Sex: Male

DRUGS (1)
  1. ONDANSETRON DISPERSIBLE TABLETS 4MG [Suspect]
     Active Substance: ONDANSETRON

REACTIONS (1)
  - Death [None]
